FAERS Safety Report 16864576 (Version 6)
Quarter: 2019Q4

REPORT INFORMATION
  Report Type: Report from Study
  Country: US (occurrence: US)
  Receive Date: 20190928
  Receipt Date: 20191128
  Transmission Date: 20200122
  Serious: Yes (Death, Hospitalization)
  Sender: FDA-Public Use
  Company Number: PHHO2019US009608

PATIENT
  Age: 62 Year
  Sex: Female
  Weight: 51 kg

DRUGS (2)
  1. PIQRAY [Suspect]
     Active Substance: ALPELISIB
     Indication: BREAST CANCER METASTATIC
     Dosage: 200 MG, QD
     Route: 048
     Dates: start: 20181120, end: 20190923
  2. LSZ102 [Suspect]
     Active Substance: INVESTIGATIONAL PRODUCT
     Indication: BREAST CANCER METASTATIC
     Dosage: 450 MG, QD
     Route: 048
     Dates: start: 20181120, end: 20190923

REACTIONS (1)
  - Pneumonia [Fatal]

NARRATIVE: CASE EVENT DATE: 20190924
